FAERS Safety Report 5360030-2 (Version None)
Quarter: 2007Q2

REPORT INFORMATION
  Report Type: 
  Country: None (occurrence: None)
  Receive Date: 20070618
  Receipt Date: 20070612
  Transmission Date: 20071010
  Serious: No
  Sender: FDA-Public Use
  Company Number: US-JNJFOC-20070501257

PATIENT
  Age: 70 Year
  Sex: Female
  Weight: 81.19 kg

DRUGS (2)
  1. INVEGA [Suspect]
     Indication: DELUSION
     Route: 048
  2. INVEGA [Suspect]
     Indication: AFFECTIVE DISORDER
     Route: 048

REACTIONS (4)
  - DEPRESSIVE SYMPTOM [None]
  - DYSPNOEA [None]
  - FACE OEDEMA [None]
  - OEDEMA PERIPHERAL [None]
